FAERS Safety Report 9994648 (Version 9)
Quarter: 2015Q2

REPORT INFORMATION
  Report Type: Report from Study
  Country: BE (occurrence: BE)
  Receive Date: 20140311
  Receipt Date: 20150617
  Transmission Date: 20150821
  Serious: Yes (Life-Threatening, Hospitalization)
  Sender: FDA-Public Use
  Company Number: BE-ROCHE-1329581

PATIENT
  Age: 76 Year
  Sex: Male
  Weight: 62 kg

DRUGS (15)
  1. RITUXIMAB [Suspect]
     Active Substance: RITUXIMAB
     Dosage: DATE OF MOST RECENT DOSE: 18/NOV/2013; MAINTENANCE THERAPY
     Route: 042
     Dates: start: 20130103
  2. CEFUROXIME. [Concomitant]
     Active Substance: CEFUROXIME
     Route: 065
     Dates: start: 20121015, end: 201210
  3. BENDAMUSTINE [Suspect]
     Active Substance: BENDAMUSTINE
     Indication: B-CELL LYMPHOMA
     Dosage: DOSE OF LAST BENDAMUSTINE TAKEN 145.4 MG?MOST RECENT DOSE OF BENDAMUSTINE PRIOR TO AE ONSET 13/NOV/2
     Route: 042
     Dates: start: 20120625
  4. LITICAN [Concomitant]
     Active Substance: ALIZAPRIDE HYDROCHLORIDE
     Indication: NAUSEA
     Route: 065
     Dates: start: 20121016
  5. PANTOMED (BELGIUM) [Concomitant]
     Indication: GASTROOESOPHAGEAL REFLUX DISEASE
  6. ALLOPURINOL. [Concomitant]
     Active Substance: ALLOPURINOL
     Indication: TUMOUR LYSIS SYNDROME
     Route: 065
     Dates: start: 20120625
  7. LORAZEPAM. [Concomitant]
     Active Substance: LORAZEPAM
     Indication: INSOMNIA
     Route: 065
     Dates: start: 20120716
  8. ZYRTEC [Concomitant]
     Active Substance: CETIRIZINE HYDROCHLORIDE
     Indication: PROPHYLAXIS
     Route: 065
     Dates: start: 20120625
  9. AEROSOL (UNK INGREDIENTS) [Concomitant]
     Indication: SINUSITIS
     Route: 065
     Dates: start: 201304
  10. DAFALGAN [Concomitant]
     Active Substance: ACETAMINOPHEN
     Indication: PROPHYLAXIS
     Route: 065
     Dates: start: 20120625
  11. LITICAN [Concomitant]
     Active Substance: ALIZAPRIDE HYDROCHLORIDE
     Route: 065
     Dates: start: 20121029
  12. RITUXIMAB [Suspect]
     Active Substance: RITUXIMAB
     Dosage: VOLUME OF LAST RITUXIMAB TAKEN 303 ML?DOSE CONCENTRATION OF LAST RITUXIMAB TAKEN 2 MG/ML
     Route: 042
     Dates: start: 20131128
  13. RITUXIMAB [Suspect]
     Active Substance: RITUXIMAB
     Indication: B-CELL LYMPHOMA
     Route: 042
     Dates: start: 20120625, end: 20121113
  14. PANTOMED (BELGIUM) [Concomitant]
     Indication: ABDOMINAL PAIN
  15. LIPITOR [Concomitant]
     Active Substance: ATORVASTATIN CALCIUM
     Indication: HYPERLIPIDAEMIA

REACTIONS (3)
  - Septic shock [Recovered/Resolved]
  - Cholecystitis [Recovered/Resolved]
  - Cholecystitis acute [Recovered/Resolved]

NARRATIVE: CASE EVENT DATE: 20131231
